FAERS Safety Report 15538876 (Version 1)
Quarter: 2018Q4

REPORT INFORMATION
  Report Type: Report from Study
  Country: US (occurrence: US)
  Receive Date: 20181022
  Receipt Date: 20181022
  Transmission Date: 20190205
  Serious: Yes (Hospitalization)
  Sender: FDA-Public Use
  Company Number: US-SA-2018SA289499

PATIENT
  Age: 43 Year
  Sex: Female

DRUGS (2)
  1. ALEMTUZUMAB [Suspect]
     Active Substance: ALEMTUZUMAB
     Indication: MULTIPLE SCLEROSIS
     Dosage: 12 MG, QD
     Route: 041
     Dates: start: 20181002, end: 20181004
  2. ALEMTUZUMAB [Suspect]
     Active Substance: ALEMTUZUMAB
     Dosage: 12 MG, QD
     Route: 041
     Dates: start: 20170925, end: 20170929

REACTIONS (7)
  - Heart rate decreased [Recovered/Resolved]
  - Poor quality sleep [Recovered/Resolved]
  - Pericardial effusion [Recovered/Resolved]
  - Pleural effusion [Recovered/Resolved]
  - Chest discomfort [Recovered/Resolved]
  - Vascular injury [Recovered/Resolved]
  - Dyspnoea [Recovered/Resolved]

NARRATIVE: CASE EVENT DATE: 20181004
